FAERS Safety Report 15979119 (Version 1)
Quarter: 2019Q1

REPORT INFORMATION
  Report Type: Spontaneous
  Country: CH (occurrence: CH)
  Receive Date: 20190219
  Receipt Date: 20190219
  Transmission Date: 20190418
  Serious: Yes (Other)
  Sender: FDA-Public Use
  Company Number: CH-ROCHE-2267117

PATIENT
  Age: 57 Year
  Sex: Male

DRUGS (2)
  1. GAZYVARO [Concomitant]
     Active Substance: OBINUTUZUMAB
  2. MABTHERA [Suspect]
     Active Substance: RITUXIMAB
     Indication: WALDENSTROM^S MACROGLOBULINAEMIA
     Route: 065

REACTIONS (1)
  - Epilepsy [Recovered/Resolved]
